FAERS Safety Report 4411690-1 (Version None)
Quarter: 2004Q3

REPORT INFORMATION
  Report Type: 
  Country: None (occurrence: None)
  Receive Date: 20040729
  Receipt Date: 20040729
  Transmission Date: 20050211
  Serious: Yes (Hospitalization)
  Sender: FDA-Public Use
  Company Number: None

PATIENT
  Age: 70 Year
  Sex: Male
  Weight: 90.2658 kg

DRUGS (8)
  1. CLOPIDOGREL BISULFATE [Suspect]
     Indication: ANTIPLATELET THERAPY
     Dosage: 75 MG DAILY ORAL
     Route: 048
     Dates: start: 20030101, end: 20040711
  2. ASPIRIN [Suspect]
     Indication: ANTIPLATELET THERAPY
     Dosage: 325 MG DAILY ORAL
     Route: 048
     Dates: start: 20030101, end: 20040711
  3. METOPROLOL SUCCINATE [Concomitant]
  4. PANTOPRAZOLE [Concomitant]
  5. NIACIN [Concomitant]
  6. RAMIPRIL [Concomitant]
  7. SIMVASTATIN [Concomitant]
  8. HYDROCODONE/ACETAMINOPHEN [Concomitant]

REACTIONS (3)
  - HYPOAESTHESIA [None]
  - PANCYTOPENIA [None]
  - THALAMUS HAEMORRHAGE [None]
